FAERS Safety Report 10549503 (Version 2)
Quarter: 2015Q1

REPORT INFORMATION
  Report Type: Spontaneous
  Country: US (occurrence: None)
  Receive Date: 20141020
  Receipt Date: 20150120
  Transmission Date: 20150720
  Serious: No
  Sender: FDA-Public Use
  Company Number: AEGR000584

PATIENT
  Age: 76 Year
  Sex: Female
  Weight: 53.5 kg

DRUGS (14)
  1. PLAVIX [Concomitant]
     Active Substance: CLOPIDOGREL BISULFATE
  2. TRILIPIX [Concomitant]
     Active Substance: FENOFIBRIC ACID
  3. POTASSIUM GLUCONATE [Concomitant]
     Active Substance: POTASSIUM GLUCONATE
  4. DEXILANT [Concomitant]
     Active Substance: DEXLANSOPRAZOLE
  5. TEKTURNA [Concomitant]
     Active Substance: ALISKIREN HEMIFUMARATE
  6. VITAMIN B COMPLEX (CALCIUM PANTOTHENATE, NICOTINAMIDE, PYRIDOXINE HYDROCHLORIDE, RIBOFLAVIN, THIAMINE HYDROCHLORIDE) [Concomitant]
  7. NASONEX [Concomitant]
     Active Substance: MOMETASONE FUROATE
  8. LOVAZA [Concomitant]
     Active Substance: OMEGA-3-ACID ETHYL ESTERS
  9. WELLBUTRIN [Concomitant]
     Active Substance: BUPROPION HYDROCHLORIDE
  10. LEVOXYL (LEVOTHYROXINE SODIUM) [Concomitant]
  11. MULTIVITAMIN (VITAMINS NOS) [Concomitant]
     Active Substance: VITAMINS
  12. JUXTAPID [Suspect]
     Active Substance: LOMITAPIDE MESYLATE
     Indication: TYPE IIA HYPERLIPIDAEMIA
     Dosage: AT BEDTIME
     Route: 048
     Dates: start: 2014
  13. COQ10 (UBIDECARENONE) [Concomitant]
     Active Substance: UBIDECARENONE
  14. VITAMIN D [Concomitant]
     Active Substance: CHOLECALCIFEROL

REACTIONS (3)
  - Off label use [None]
  - Erythema [None]
  - Weight decreased [None]

NARRATIVE: CASE EVENT DATE: 201404
